FAERS Safety Report 8606202 (Version 4)
Quarter: 2012Q4

REPORT INFORMATION
  Report Type: 
  Country: US (occurrence: US)
  Receive Date: 20120608
  Receipt Date: 20121112
  Transmission Date: 20130627
  Serious: Yes (Hospitalization)
  Sender: FDA-Public Use
  Company Number: US-US-EMD SERONO, INC.-7137396

PATIENT
  Sex: Female

DRUGS (1)
  1. REBIF [Suspect]
     Indication: MULTIPLE SCLEROSIS
     Dates: start: 20120221, end: 201203

REACTIONS (3)
  - Renal failure chronic [Not Recovered/Not Resolved]
  - Renal failure acute [Not Recovered/Not Resolved]
  - Influenza like illness [Unknown]
